FAERS Safety Report 18572849 (Version 3)
Quarter: 2021Q1

REPORT INFORMATION
  Report Type: Spontaneous
  Country: CA (occurrence: CA)
  Receive Date: 20201202
  Receipt Date: 20210302
  Transmission Date: 20210419
  Serious: Yes (Other)
  Sender: FDA-Public Use
  Company Number: CA-CELLTRION INC.-2020CA032893

PATIENT

DRUGS (4)
  1. INFLECTRA [Suspect]
     Active Substance: INFLIXIMAB-DYYB
     Indication: RHEUMATOID ARTHRITIS
     Dosage: 200 MG, EVERY 0,2,6 WEEKS THEN EVERY 6 WEEKS
     Route: 042
     Dates: start: 20200608
  2. INFLECTRA [Suspect]
     Active Substance: INFLIXIMAB-DYYB
     Dosage: 200 MG, EVERY 0,2,6 WEEKS THEN EVERY 6 WEEKS
     Route: 042
     Dates: start: 20201124
  3. INFLECTRA [Suspect]
     Active Substance: INFLIXIMAB-DYYB
     Dosage: 200 MG, EVERY 0,2,6 WEEKS THEN EVERY 6 WEEKS
     Route: 042
     Dates: start: 20210106
  4. INFLECTRA [Suspect]
     Active Substance: INFLIXIMAB-DYYB
     Dosage: 200 MG, EVERY 0,2,6 WEEKS THEN EVERY 6 WEEKS
     Route: 042
     Dates: start: 20201014

REACTIONS (4)
  - Nephrolithiasis [Recovered/Resolved]
  - Macular fibrosis [Unknown]
  - Off label use [Unknown]
  - Pruritus [Recovered/Resolved]

NARRATIVE: CASE EVENT DATE: 202011
